FAERS Safety Report 19735555 (Version 1)
Quarter: 2021Q3

REPORT INFORMATION
  Report Type: Spontaneous
  Country: RU (occurrence: RU)
  Receive Date: 20210824
  Receipt Date: 20210824
  Transmission Date: 20211014
  Serious: Yes (Death, Other)
  Sender: FDA-Public Use
  Company Number: RU-VALIDUS PHARMACEUTICALS LLC-RU-VDP-2021-000428

PATIENT
  Age: 37 Year
  Sex: Female

DRUGS (10)
  1. ACYCLOVIR [ACICLOVIR SODIUM] [Suspect]
     Active Substance: ACYCLOVIR
     Indication: ANTIVIRAL TREATMENT
     Dosage: UNK
     Route: 065
     Dates: start: 201404, end: 201405
  2. CEFOTAXIME SODIUM [Suspect]
     Active Substance: CEFOTAXIME SODIUM
     Indication: ANTIBIOTIC THERAPY
     Dosage: UNK
     Route: 065
     Dates: start: 201404, end: 201405
  3. HEPARIN [Suspect]
     Active Substance: HEPARIN SODIUM
     Indication: MENINGOENCEPHALITIS VIRAL
     Dosage: UNK
     Route: 065
     Dates: start: 201404, end: 201405
  4. GLUCOSE + SODIUM CHLORIDE [Suspect]
     Active Substance: DEXTROSE\SODIUM CHLORIDE
     Indication: PRODUCT USED FOR UNKNOWN INDICATION
     Dosage: UNK
     Route: 065
     Dates: start: 201404, end: 201405
  5. VIFERON [Suspect]
     Active Substance: INTERFERON ALFA-2B
     Indication: ANTIVIRAL TREATMENT
     Dosage: UNK
     Route: 065
     Dates: start: 201404, end: 201405
  6. VOLUVEN [Suspect]
     Active Substance: HYDROXYETHYL STARCH 130/0.4
     Indication: PRODUCT USED FOR UNKNOWN INDICATION
     Dosage: UNK
     Route: 065
     Dates: start: 201404, end: 201405
  7. PROPOFOL. [Suspect]
     Active Substance: PROPOFOL
     Indication: MENINGOENCEPHALITIS VIRAL
     Dosage: UNK
     Route: 065
     Dates: start: 201404, end: 201405
  8. DEXAMETHASONE. [Suspect]
     Active Substance: DEXAMETHASONE
     Indication: STEROID THERAPY
     Route: 065
  9. TRENTAL [Suspect]
     Active Substance: PENTOXIFYLLINE
     Indication: MENINGOENCEPHALITIS VIRAL
     Dosage: UNK
     Route: 065
     Dates: start: 201404, end: 201405
  10. DOPAMINE HYDROCHLORIDE. [Suspect]
     Active Substance: DOPAMINE HYDROCHLORIDE
     Indication: MENINGOENCEPHALITIS VIRAL
     Dosage: UNK
     Route: 065
     Dates: start: 201404, end: 201405

REACTIONS (4)
  - Cardiac arrest [Fatal]
  - Product use in unapproved indication [Fatal]
  - Multiple organ dysfunction syndrome [Fatal]
  - Cerebrovascular insufficiency [Fatal]

NARRATIVE: CASE EVENT DATE: 201404
